FAERS Safety Report 7349297-9 (Version None)
Quarter: 2011Q1

REPORT INFORMATION
  Report Type: 
  Country: None (occurrence: None)
  Receive Date: 20110314
  Receipt Date: 20110307
  Transmission Date: 20110831
  Serious: Yes (Hospitalization)
  Sender: FDA-Public Use
  Company Number: US-B.I. PHARMACEUTICALS,INC./RIDGEFIELD-2011-BP-06912BP

PATIENT
  Sex: Male

DRUGS (4)
  1. SPIRIVA [Suspect]
     Indication: EMPHYSEMA
     Dosage: 18 MCG
  2. MEDICATIONS NOT FURTHER SPECIFIED [Concomitant]
  3. COMBIVENT [Suspect]
  4. ADVAIR DISKUS 100/50 [Concomitant]
     Indication: EMPHYSEMA

REACTIONS (2)
  - PNEUMONIA BACTERIAL [None]
  - DYSPNOEA [None]
